FAERS Safety Report 17531701 (Version 1)
Quarter: 2020Q1

REPORT INFORMATION
  Report Type: Spontaneous
  Country: US (occurrence: US)
  Receive Date: 20200311
  Receipt Date: 20200311
  Transmission Date: 20200409
  Serious: Yes (Other)
  Sender: FDA-Public Use
  Company Number: None

PATIENT
  Age: 52 Year
  Sex: Female
  Weight: 105.75 kg

DRUGS (3)
  1. XYREM [Suspect]
     Active Substance: SODIUM OXYBATE
     Indication: NARCOLEPSY
     Route: 048
     Dates: start: 20200220, end: 20200306
  2. XYREM [Suspect]
     Active Substance: SODIUM OXYBATE
     Indication: CATAPLEXY
     Route: 048
     Dates: start: 20200220, end: 20200306
  3. FISH OIL [Concomitant]
     Active Substance: FISH OIL

REACTIONS (11)
  - Crying [None]
  - Musculoskeletal chest pain [None]
  - Pain [None]
  - Eye movement disorder [None]
  - Vomiting [None]
  - Movement disorder [None]
  - Speech disorder [None]
  - Feeling abnormal [None]
  - Loss of consciousness [None]
  - Dysarthria [None]
  - Fall [None]

NARRATIVE: CASE EVENT DATE: 20200307
